FAERS Safety Report 9511120 (Version 1)
Quarter: 2013Q3

REPORT INFORMATION
  Report Type: Spontaneous
  Country: US (occurrence: None)
  Receive Date: 20130909
  Receipt Date: 20130909
  Transmission Date: 20140515
  Serious: Yes (Other)
  Sender: FDA-Public Use
  Company Number: None

PATIENT
  Age: 46 Year
  Sex: Female
  Weight: 120.2 kg

DRUGS (6)
  1. B COMPLEX [Suspect]
     Dosage: 2/3 THREE TIMES DAILY TAKEN BY MOUTH
     Route: 048
     Dates: start: 20121228, end: 20130904
  2. VITAMIN C [Concomitant]
     Dosage: 2/3 TREE TIMES DAILY TAKEN BY MOUTH
     Route: 048
     Dates: start: 20121228, end: 20130904
  3. C-PAP MACHINE [Concomitant]
  4. MELATONIN [Concomitant]
  5. BIOTIN [Concomitant]
  6. CITICOLIN [Concomitant]

REACTIONS (6)
  - Mood swings [None]
  - Vaginal infection [None]
  - Amenorrhoea [None]
  - Alopecia [None]
  - Alopecia [None]
  - Pruritus [None]
